FAERS Safety Report 5476787-6 (Version None)
Quarter: 2007Q4

REPORT INFORMATION
  Report Type: 
  Country: None (occurrence: None)
  Receive Date: 20071003
  Receipt Date: 20071003
  Transmission Date: 20080405
  Serious: Yes (Death)
  Sender: FDA-Public Use
  Company Number: None

PATIENT
  Sex: Male
  Weight: 90.7194 kg

DRUGS (2)
  1. GEMCITABINE HCL [Suspect]
     Dosage: 1GM/M2 = 2100MG WKLYX3 IV
     Route: 042
     Dates: start: 20070706, end: 20070810
  2. LAPATINIB [Suspect]
     Dosage: 1250MG/DAY DAILY PO
     Route: 048
     Dates: start: 20070706, end: 20070817

REACTIONS (2)
  - DYSPNOEA [None]
  - PAIN [None]
